FAERS Safety Report 5766039-9 (Version None)
Quarter: 2008Q2

REPORT INFORMATION
  Report Type: 
  Country: None (occurrence: None)
  Receive Date: 20080611
  Receipt Date: 20080530
  Transmission Date: 20081010
  Serious: Yes (Death)
  Sender: FDA-Public Use
  Company Number: FI-PFIZER INC-2008046334

PATIENT
  Age: 60 Year
  Sex: Female

DRUGS (4)
  1. CHANTIX [Suspect]
     Indication: SMOKING CESSATION THERAPY
     Route: 048
  2. ARDINEX [Concomitant]
  3. TENOX [Concomitant]
  4. OPAMOX [Concomitant]

REACTIONS (1)
  - DEATH [None]
